FAERS Safety Report 7918027-1 (Version None)
Quarter: 2011Q4

REPORT INFORMATION
  Report Type: 
  Country: None (occurrence: None)
  Receive Date: 20111116
  Receipt Date: 20111109
  Transmission Date: 20120403
  Serious: Yes (Hospitalization, Disabling)
  Sender: FDA-Public Use
  Company Number: US-MERCK-1105USA02537

PATIENT
  Age: 54 Year
  Sex: Female
  Weight: 62 kg

DRUGS (9)
  1. FOSAMAX [Suspect]
     Route: 048
     Dates: end: 20090509
  2. CALCIUM (UNSPECIFIED) [Concomitant]
     Route: 065
     Dates: start: 20050101
  3. FOSAMAX [Suspect]
     Indication: OSTEOPOROSIS
     Route: 048
     Dates: start: 20050305, end: 20071017
  4. FOSAMAX [Suspect]
     Route: 048
     Dates: end: 20090101
  5. VITAMIN D (UNSPECIFIED) [Concomitant]
     Route: 065
     Dates: start: 20050101
  6. ALENDRONATE SODIUM [Suspect]
     Indication: OSTEOPOROSIS
     Route: 048
     Dates: start: 20080311, end: 20080603
  7. VITAMIN B COMPLEX [Concomitant]
     Route: 065
     Dates: start: 20050101
  8. ALENDRONATE SODIUM [Suspect]
     Route: 048
     Dates: start: 20080906, end: 20081126
  9. PREMPRO [Concomitant]
     Indication: HORMONE THERAPY
     Route: 065
     Dates: start: 20001201

REACTIONS (34)
  - ACUTE SINUSITIS [None]
  - CELLULITIS ORBITAL [None]
  - TRISMUS [None]
  - PULMONARY FIBROSIS [None]
  - RADICULITIS LUMBOSACRAL [None]
  - FATIGUE [None]
  - DIPLOPIA [None]
  - STAPHYLOCOCCAL INFECTION [None]
  - INTERVERTEBRAL DISC DEGENERATION [None]
  - PHARYNGITIS STREPTOCOCCAL [None]
  - HYPERCALCAEMIA [None]
  - HAEMORRHOIDS [None]
  - HAEMATOCHEZIA [None]
  - SPINAL OSTEOARTHRITIS [None]
  - BRONCHIAL HYPERREACTIVITY [None]
  - FEMUR FRACTURE [None]
  - ADVERSE DRUG REACTION [None]
  - BACK PAIN [None]
  - DYSLIPIDAEMIA [None]
  - PAIN IN EXTREMITY [None]
  - NECK MASS [None]
  - SINUS DISORDER [None]
  - FOOT FRACTURE [None]
  - EPISTAXIS [None]
  - ASTHMA [None]
  - PERITONSILLAR ABSCESS [None]
  - COAGULOPATHY [None]
  - FALL [None]
  - VOMITING [None]
  - VITAMIN D DEFICIENCY [None]
  - HYPOAESTHESIA ORAL [None]
  - MUSCULOSKELETAL PAIN [None]
  - SCOLIOSIS [None]
  - DEEP VEIN THROMBOSIS [None]
